FAERS Safety Report 15937529 (Version 1)
Quarter: 2019Q1

REPORT INFORMATION
  Report Type: Spontaneous
  Country: DE (occurrence: DE)
  Receive Date: 20190208
  Receipt Date: 20190208
  Transmission Date: 20190417
  Serious: Yes (Hospitalization, Other)
  Sender: FDA-Public Use
  Company Number: DE-DRREDDYS-GER/GER/19/0107423

PATIENT
  Age: 88 Year
  Sex: Male

DRUGS (1)
  1. METOPROLOL-SUCCINAT 47.5 MG RETARDTABLETTEN V [Suspect]
     Active Substance: METOPROLOL SUCCINATE
     Indication: PRODUCT USED FOR UNKNOWN INDICATION
     Dosage: 1-0-1
     Route: 048

REACTIONS (3)
  - Cardiac arrest [Unknown]
  - Transcription medication error [Unknown]
  - Accidental overdose [Unknown]

NARRATIVE: CASE EVENT DATE: 20181214
